FAERS Safety Report 6257167-2 (Version None)
Quarter: 2009Q3

REPORT INFORMATION
  Report Type: 
  Country: None (occurrence: None)
  Receive Date: 20090706
  Receipt Date: 20090429
  Transmission Date: 20100115
  Serious: No
  Sender: FDA-Public Use
  Company Number: US-BAYER-200911354BCC

PATIENT
  Sex: Female
  Weight: 52 kg

DRUGS (2)
  1. MIDOL [Suspect]
     Indication: UNEVALUABLE EVENT
     Dosage: TOOK TWO DOSES OF THE MIDOL WHICH CONTAINED 500MG EACH OF ACETAMINOPHEN
     Route: 048
     Dates: start: 20090409
  2. TYLENOL (CAPLET) [Concomitant]
     Indication: HYPERSENSITIVITY
     Dosage: TOOK 2 CAPLETS ONCE
     Route: 048
     Dates: start: 20090409, end: 20090409

REACTIONS (1)
  - HYPERSENSITIVITY [None]
